FAERS Safety Report 4496176-0 (Version None)
Quarter: 2004Q4

REPORT INFORMATION
  Report Type: 
  Country: None (occurrence: None)
  Receive Date: 20041102
  Receipt Date: 20041018
  Transmission Date: 20050328
  Serious: Yes (Other)
  Sender: FDA-Public Use
  Company Number: 200410282BBE

PATIENT
  Sex: Male

DRUGS (3)
  1. FACTOR IX COMPLEX [Suspect]
     Indication: FACTOR VIII DEFICIENCY
     Dates: start: 19780408
  2. PROPLEX [Suspect]
     Indication: FACTOR VIII DEFICIENCY
     Dates: start: 19781114
  3. AUTOPLEX [Suspect]
     Indication: FACTOR VIII DEFICIENCY

REACTIONS (3)
  - HEPATITIS A [None]
  - HEPATITIS B [None]
  - HEPATITIS C [None]
